FAERS Safety Report 4629446-3 (Version None)
Quarter: 2005Q2

REPORT INFORMATION
  Report Type: 
  Country: None (occurrence: None)
  Receive Date: 20050405
  Receipt Date: 20050323
  Transmission Date: 20051028
  Serious: Yes (Hospitalization)
  Sender: FDA-Public Use
  Company Number: 2005043288

PATIENT
  Age: 50 Year
  Sex: Male

DRUGS (5)
  1. NORVASC [Suspect]
     Indication: HYPERTENSION
     Dosage: 5 MG (ONCE A DAY), ORAL
     Route: 048
     Dates: start: 20000808, end: 20050223
  2. CIMETIDINE [Concomitant]
  3. TEPRENONE (TEPRENONE) [Concomitant]
  4. DOMPERIDONE (DOMPERIDONE) [Concomitant]
  5. MARZULENE S (LEVOGLUTAMIDE, SODIUM GUALENATE) [Concomitant]

REACTIONS (8)
  - ABDOMINAL PAIN UPPER [None]
  - GAMMA-GLUTAMYLTRANSFERASE ABNORMAL [None]
  - HYPERTENSION [None]
  - LIVER DISORDER [None]
  - NAUSEA [None]
  - PNEUMONIA [None]
  - PYREXIA [None]
  - VOMITING [None]
